FAERS Safety Report 7883166-0 (Version None)
Quarter: 2011Q4

REPORT INFORMATION
  Report Type: 
  Country: None (occurrence: None)
  Receive Date: 20111101
  Receipt Date: 20111101
  Transmission Date: 20120403
  Serious: Yes (Hospitalization)
  Sender: FDA-Public Use
  Company Number: None

PATIENT
  Sex: Female
  Weight: 76.72 kg

DRUGS (2)
  1. TAXOL [Suspect]
     Dosage: 336 MG
     Dates: end: 20111005
  2. CARBOPLATIN [Suspect]
     Dosage: 703 MG
     Dates: end: 20111005

REACTIONS (1)
  - LARGE INTESTINAL OBSTRUCTION [None]
